FAERS Safety Report 15572467 (Version 1)
Quarter: 2018Q4

REPORT INFORMATION
  Report Type: Spontaneous
  Country: US (occurrence: US)
  Receive Date: 20181026
  Receipt Date: 20181026
  Transmission Date: 20190205
  Serious: No
  Sender: FDA-Public Use
  Company Number: None

PATIENT
  Age: 35 Year
  Sex: Male
  Weight: 91.17 kg

DRUGS (1)
  1. SUBOXONE [Suspect]
     Active Substance: BUPRENORPHINE HYDROCHLORIDE\NALOXONE HYDROCHLORIDE
     Indication: DRUG DEPENDENCE
     Route: 060
     Dates: start: 20180822

REACTIONS (7)
  - Nausea [None]
  - Diarrhoea [None]
  - Vomiting [None]
  - Abdominal pain [None]
  - Rash generalised [None]
  - Hyperhidrosis [None]
  - Rash papular [None]

NARRATIVE: CASE EVENT DATE: 20180822
